FAERS Safety Report 6920233-X (Version None)
Quarter: 2010Q3

REPORT INFORMATION
  Report Type: 
  Country: None (occurrence: None)
  Receive Date: 20100809
  Receipt Date: 20100723
  Transmission Date: 20110219
  Serious: Yes (Other)
  Sender: FDA-Public Use
  Company Number: 2010S1004695

PATIENT

DRUGS (6)
  1. PHOSPHOSODA FLAVOR NOT SPECIFIED [Suspect]
     Indication: COLONOSCOPY
     Dosage: PO
     Route: 048
     Dates: start: 20060213, end: 20060213
  2. CLIMARA [Concomitant]
  3. LIPITOR [Concomitant]
  4. HYDROCHLOROTHIAZIDE [Concomitant]
  5. POTASSIUM [Concomitant]
  6. NORVASC [Concomitant]

REACTIONS (4)
  - DEHYDRATION [None]
  - ELECTROLYTE IMBALANCE [None]
  - RENAL DISORDER [None]
  - RENAL IMPAIRMENT [None]
